FAERS Safety Report 14278201 (Version 2)
Quarter: 2018Q1

REPORT INFORMATION
  Report Type: Spontaneous
  Country: DE (occurrence: DE)
  Receive Date: 20171212
  Receipt Date: 20180105
  Transmission Date: 20180508
  Serious: Yes (Hospitalization)
  Sender: FDA-Public Use
  Company Number: DE-TEVA-2017-DE-830134

PATIENT
  Age: 75 Year
  Sex: Male

DRUGS (2)
  1. ALLOPURINOL. [Suspect]
     Active Substance: ALLOPURINOL
     Indication: BLOOD URIC ACID INCREASED
  2. METFORMIN [Concomitant]
     Active Substance: METFORMIN HYDROCHLORIDE
     Indication: PRODUCT USED FOR UNKNOWN INDICATION

REACTIONS (10)
  - Vomiting [Unknown]
  - Petechiae [Unknown]
  - Vasculitis [Unknown]
  - Nausea [Unknown]
  - Pruritus [Unknown]
  - Erythema [Unknown]
  - Pallor [Unknown]
  - Drug hypersensitivity [Unknown]
  - Rash generalised [Unknown]
  - Pyrexia [Unknown]
